FAERS Safety Report 7622925-6 (Version None)
Quarter: 2011Q3

REPORT INFORMATION
  Report Type: 
  Country: None (occurrence: None)
  Receive Date: 20110712
  Receipt Date: 20110705
  Transmission Date: 20111222
  Serious: Yes (Other)
  Sender: FDA-Public Use
  Company Number: 201110785

PATIENT
  Age: 56 Year
  Sex: Male

DRUGS (4)
  1. LIORESAL [Suspect]
     Indication: MUSCLE SPASTICITY
     Dosage: MCG, DAILY INTRATHECAL
     Route: 037
  2. CLONIDINE [Concomitant]
  3. MARCAINE HCL [Concomitant]
  4. FENTANYL [Concomitant]

REACTIONS (23)
  - DRUG WITHDRAWAL SYNDROME [None]
  - INTRACRANIAL HYPOTENSION [None]
  - DIZZINESS [None]
  - HYPOAESTHESIA [None]
  - ASTHENIA [None]
  - DEVICE BREAKAGE [None]
  - HEADACHE [None]
  - DYSGEUSIA [None]
  - FALL [None]
  - NAUSEA [None]
  - DYSSTASIA [None]
  - COUGH [None]
  - MOBILITY DECREASED [None]
  - VOMITING [None]
  - WEIGHT DECREASED [None]
  - MALAISE [None]
  - OESOPHAGEAL PAIN [None]
  - DECREASED APPETITE [None]
  - MEDICAL DEVICE COMPLICATION [None]
  - DRY MOUTH [None]
  - DYSPNOEA [None]
  - INSOMNIA [None]
  - MUSCULAR WEAKNESS [None]
